FAERS Safety Report 5013419-5 (Version None)
Quarter: 2006Q2

REPORT INFORMATION
  Report Type: 
  Country: None (occurrence: None)
  Receive Date: 20060530
  Receipt Date: 20060522
  Transmission Date: 20061013
  Serious: Yes (Hospitalization)
  Sender: FDA-Public Use
  Company Number: US-BRISTOL-MYERS SQUIBB COMPANY-13385117

PATIENT
  Age: 67 Year
  Sex: Male
  Weight: 106 kg

DRUGS (5)
  1. ERBITUX [Suspect]
     Indication: NON-SMALL CELL LUNG CANCER STAGE III
     Dosage: 400 MG/M2 ADMIN OVER 120 MIN D1 WK 1/F/B 250 MG/M2 OVER 60 MIN WKLY/TOTAL ADMIN THIS COURSE=880 MG.
     Route: 042
     Dates: start: 20060301, end: 20060301
  2. CARBOPLATIN [Suspect]
     Indication: NON-SMALL CELL LUNG CANCER STAGE III
     Dosage: AUC-6 ADMIN DAY 1 X 4 CYCLES.  TOTAL DOSE THIS COURSE = 890 MG.
     Route: 042
     Dates: start: 20060301, end: 20060301
  3. PEMETREXED DISODIUM [Suspect]
     Indication: NON-SMALL CELL LUNG CANCER STAGE III
     Dosage: 500 MG/M2 ADMINISTERED ON DAY 1 X 4 CYCLES. TOTAL DOSE THIS COURSE = 1100 MG.
     Route: 042
     Dates: start: 20060301, end: 20060301
  4. RADIATION THERAPY [Suspect]
     Indication: NON-SMALL CELL LUNG CANCER STAGE III
     Dosage: 70 GY ON DAY 1 X 7 WKS VIA EXTERNAL BEAM, 3D/TOTAL DOSE TO DATE = 4 GY/35 FRACTIONS/6 ELAPSED DAYS.
     Dates: start: 20060302, end: 20060302
  5. DEXAMETHASONE TAB [Suspect]
     Route: 048
     Dates: start: 20060228

REACTIONS (1)
  - LARGE INTESTINE PERFORATION [None]
